FAERS Safety Report 22166024 (Version 1)
Quarter: 2023Q1

REPORT INFORMATION
  Report Type: Spontaneous
  Country: US (occurrence: None)
  Receive Date: 20230331
  Receipt Date: 20230331
  Transmission Date: 20230418
  Serious: Yes (Life-Threatening, Other)
  Sender: FDA-Public Use
  Company Number: None

PATIENT
  Age: 67 Year
  Sex: Female
  Weight: 62.55 kg

DRUGS (12)
  1. FAMOTIDINE [Suspect]
     Active Substance: FAMOTIDINE
     Indication: Gastrooesophageal reflux disease
     Dosage: OTHER QUANTITY : 90 TABLET(S);?FREQUENCY : AS NEEDED;?
     Route: 048
  2. ZAFIRLUKAST [Suspect]
     Active Substance: ZAFIRLUKAST
  3. BRILINTA [Concomitant]
     Active Substance: TICAGRELOR
  4. FAMOTIDINE [Concomitant]
     Active Substance: FAMOTIDINE
  5. OXYBUTYNIN [Concomitant]
     Active Substance: OXYBUTYNIN
  6. CLONAZEPAM [Concomitant]
     Active Substance: CLONAZEPAM
  7. METOPROLOL TARTRATE [Concomitant]
     Active Substance: METOPROLOL TARTRATE
  8. heart stent [Concomitant]
  9. ASPIRIN [Concomitant]
     Active Substance: ASPIRIN
  10. VITAMINS [Concomitant]
     Active Substance: VITAMINS
  11. VITAMIN D3 [Concomitant]
     Active Substance: CHOLECALCIFEROL
  12. CALCIUM [Concomitant]
     Active Substance: CALCIUM

REACTIONS (7)
  - Cough [None]
  - Abdominal discomfort [None]
  - Headache [None]
  - Product dispensing error [None]
  - Wrong product administered [None]
  - Hepatic enzyme increased [None]
  - Dyspepsia [None]

NARRATIVE: CASE EVENT DATE: 20230303
